FAERS Safety Report 16502677 (Version 1)
Quarter: 2019Q3

REPORT INFORMATION
  Report Type: Spontaneous
  Country: TW (occurrence: TW)
  Receive Date: 20190701
  Receipt Date: 20190701
  Transmission Date: 20191004
  Serious: Yes (Other)
  Sender: FDA-Public Use
  Company Number: TW-SEBELA IRELAND LIMITED-2019SEB00170

PATIENT
  Age: 37 Year
  Sex: Female

DRUGS (1)
  1. AZATHIOPRINE. [Suspect]
     Active Substance: AZATHIOPRINE
     Indication: CHRONIC SPONTANEOUS URTICARIA
     Dosage: 50 MG, 1X/DAY
     Route: 065

REACTIONS (3)
  - Erythema nodosum [Recovered/Resolved]
  - Hypersensitivity [Recovered/Resolved]
  - Hepatitis [Recovered/Resolved]
